FAERS Safety Report 7471829-0 (Version None)
Quarter: 2011Q2

REPORT INFORMATION
  Report Type: 
  Country: None (occurrence: None)
  Receive Date: 20110511
  Receipt Date: 20100514
  Transmission Date: 20111010
  Serious: No
  Sender: FDA-Public Use
  Company Number: A0862014A

PATIENT
  Age: 65 Year
  Sex: Female

DRUGS (3)
  1. TYKERB [Suspect]
     Dosage: 250MG FIVE TIMES PER DAY
     Route: 065
     Dates: start: 20100415, end: 20100617
  2. XELODA [Suspect]
  3. HERCEPTIN [Concomitant]

REACTIONS (9)
  - FATIGUE [None]
  - PRURITUS [None]
  - RETCHING [None]
  - MILIA [None]
  - DISEASE PROGRESSION [None]
  - DRY SKIN [None]
  - LACERATION [None]
  - DIARRHOEA [None]
  - RASH [None]
